FAERS Safety Report 8223834-4 (Version None)
Quarter: 2012Q1

REPORT INFORMATION
  Report Type: 
  Country: None (occurrence: None)
  Receive Date: 20120321
  Receipt Date: 20120312
  Transmission Date: 20120608
  Serious: Yes (Hospitalization, Other)
  Sender: FDA-Public Use
  Company Number: BR-JNJFOC-20120307418

PATIENT
  Age: 14 Year
  Sex: Female

DRUGS (3)
  1. REMICADE [Suspect]
     Route: 042
  2. REMICADE [Suspect]
     Indication: COLITIS ULCERATIVE
     Route: 042
     Dates: start: 20120103
  3. HYDROCORTISONE [Concomitant]
     Indication: PREMEDICATION
     Route: 065

REACTIONS (10)
  - TACHYCARDIA [None]
  - RESPIRATORY DISORDER [None]
  - ABDOMINAL PAIN [None]
  - BLOOD UREA INCREASED [None]
  - TREMOR [None]
  - URTICARIA [None]
  - PYREXIA [None]
  - INFUSION RELATED REACTION [None]
  - BLOOD CREATININE INCREASED [None]
  - TACHYPNOEA [None]
